FAERS Safety Report 13570001 (Version 2)
Quarter: 2017Q4

REPORT INFORMATION
  Report Type: Report from Study
  Country: JP (occurrence: JP)
  Receive Date: 20170522
  Receipt Date: 20171016
  Transmission Date: 20180320
  Serious: Yes (Hospitalization, Other)
  Sender: FDA-Public Use
  Company Number: JP-INCYTE CORPORATION-2017IN003868

PATIENT

DRUGS (5)
  1. JAKAVI [Suspect]
     Active Substance: RUXOLITINIB
     Dosage: 10 MG, BID
     Route: 048
     Dates: start: 20160926, end: 20161103
  2. JAKAVI [Suspect]
     Active Substance: RUXOLITINIB
     Indication: MYELOFIBROSIS
     Dosage: 5 MG, BID
     Route: 048
     Dates: start: 20160912, end: 20160925
  3. JAKAVI [Suspect]
     Active Substance: RUXOLITINIB
     Dosage: 10 MG, BID
     Route: 048
     Dates: start: 20161121, end: 20161225
  4. JAKAVI [Suspect]
     Active Substance: RUXOLITINIB
     Dosage: 7.5 MG, BID
     Route: 048
     Dates: start: 20161226
  5. BAYASPIRIN [Concomitant]
     Active Substance: ASPIRIN
     Indication: MYELOFIBROSIS
     Dosage: 100 MG, UNK
     Route: 048
     Dates: end: 20161004

REACTIONS (4)
  - Erythema [Recovering/Resolving]
  - Tinea pedis [Recovered/Resolved]
  - Cellulitis [Recovered/Resolved]
  - Bronchitis [Recovered/Resolved]

NARRATIVE: CASE EVENT DATE: 20161031
